FAERS Safety Report 6701083-6 (Version None)
Quarter: 2010Q2

REPORT INFORMATION
  Report Type: 
  Country: None (occurrence: None)
  Receive Date: 20100428
  Receipt Date: 20100428
  Transmission Date: 20101027
  Serious: Yes (Hospitalization)
  Sender: FDA-Public Use
  Company Number: None

PATIENT
  Sex: Female
  Weight: 81.9 kg

DRUGS (2)
  1. CISPLATIN [Suspect]
     Dosage: 14.6 MG
  2. TAXOL [Suspect]
     Dosage: 325 MG

REACTIONS (3)
  - DIARRHOEA [None]
  - DRUG HYPERSENSITIVITY [None]
  - INFUSION RELATED REACTION [None]
